FAERS Safety Report 5508620-8 (Version None)
Quarter: 2007Q4

REPORT INFORMATION
  Report Type: 
  Country: None (occurrence: None)
  Receive Date: 20071107
  Receipt Date: 20071105
  Transmission Date: 20080405
  Serious: Yes (Other)
  Sender: FDA-Public Use
  Company Number: TW-BRISTOL-MYERS SQUIBB COMPANY-13960380

PATIENT
  Age: 70 Year
  Sex: Male

DRUGS (9)
  1. WARFARIN SODIUM [Suspect]
  2. FUROSEMIDE [Concomitant]
     Indication: HYPERTENSION
  3. FUROSEMIDE [Concomitant]
     Indication: CARDIAC FAILURE
  4. LOSARTAN POTASSIUM [Concomitant]
     Indication: CARDIAC FAILURE
  5. LOSARTAN POTASSIUM [Concomitant]
     Indication: HYPERTENSION
  6. METHYLDOPA [Concomitant]
     Indication: CARDIAC FAILURE
  7. METHYLDOPA [Concomitant]
     Indication: HYPERTENSION
  8. CARVEDILOL [Concomitant]
     Indication: CARDIAC FAILURE
  9. CARVEDILOL [Concomitant]
     Indication: HYPERTENSION

REACTIONS (4)
  - CARDIAC TAMPONADE [None]
  - INTERNATIONAL NORMALISED RATIO INCREASED [None]
  - PERICARDIAL HAEMORRHAGE [None]
  - PLEURAL EFFUSION [None]
